FAERS Safety Report 6416579-4 (Version None)
Quarter: 2009Q4

REPORT INFORMATION
  Report Type: 
  Country: None (occurrence: None)
  Receive Date: 20091027
  Receipt Date: 20091008
  Transmission Date: 20100525
  Serious: Yes (Hospitalization, Other)
  Sender: FDA-Public Use
  Company Number: PHEH2008US05093

PATIENT
  Sex: Female
  Weight: 47.166 kg

DRUGS (12)
  1. AREDIA [Suspect]
     Dosage: UNK
  2. ZOMETA [Suspect]
     Dosage: UNK
     Dates: start: 20050801, end: 20061101
  3. CHEMOTHERAPEUTICS NOS [Concomitant]
     Dosage: UNK
     Dates: start: 20050501, end: 20051101
  4. SENOKOT                                 /UNK/ [Concomitant]
  5. ADRIAMYCIN PFS [Concomitant]
     Indication: BREAST CANCER
  6. CYTOXAN [Concomitant]
     Indication: BREAST CANCER
  7. TAXOTERE [Concomitant]
     Indication: BREAST CANCER
  8. NEULASTA [Concomitant]
     Indication: BREAST CANCER
  9. LORTAB [Concomitant]
  10. COMPAZINE [Concomitant]
  11. ARIMIDEX [Concomitant]
  12. ZOLADEX [Concomitant]

REACTIONS (35)
  - ABDOMINAL PAIN [None]
  - ABSCESS DRAINAGE [None]
  - ALOPECIA [None]
  - AMENORRHOEA [None]
  - ANXIETY [None]
  - BONE DISORDER [None]
  - BONE PAIN [None]
  - BREAST CYST [None]
  - CATARACT [None]
  - COLITIS [None]
  - DECREASED APPETITE [None]
  - DEPRESSION [None]
  - DIARRHOEA [None]
  - GASTROOESOPHAGEAL REFLUX DISEASE [None]
  - GENERAL PHYSICAL HEALTH DETERIORATION [None]
  - HAEMANGIOMA OF LIVER [None]
  - HOT FLUSH [None]
  - HYPOAESTHESIA [None]
  - INFECTION [None]
  - KETONURIA [None]
  - METASTASES TO BONE [None]
  - METASTASES TO LIVER [None]
  - MIGRAINE [None]
  - MUSCULOSKELETAL DISCOMFORT [None]
  - NEUTROPENIA [None]
  - OSTEONECROSIS [None]
  - OSTEOPENIA [None]
  - PAIN [None]
  - PAIN IN EXTREMITY [None]
  - PAIN IN JAW [None]
  - SINUS DISORDER [None]
  - SPLENIC CYST [None]
  - SWELLING FACE [None]
  - TOOTH EROSION [None]
  - TOOTH EXTRACTION [None]
